FAERS Safety Report 9546993 (Version 1)
Quarter: 2013Q2

REPORT INFORMATION
  Report Type: Spontaneous
  Country: US (occurrence: None)
  Receive Date: 20130606
  Receipt Date: 20130606
  Transmission Date: 20140414
  Serious: No
  Sender: FDA-Public Use
  Company Number: 163-POMAL-13040139

PATIENT
  Age: 67 Year
  Sex: Female

DRUGS (8)
  1. POMALYST [Suspect]
     Indication: PLASMA CELL MYELOMA
     Route: 048
     Dates: start: 20130320
  2. DEXAMETHASONE (DEXAMETHASONE) [Concomitant]
  3. ZOLPIDEM (ZOLPIDEM) [Concomitant]
  4. VENLAFAXINE (VENLAFAXINE) [Concomitant]
  5. FENTANYL (FENTANYL) [Concomitant]
  6. ACETAMINOPHEN (PARACETAMOL) [Concomitant]
  7. ASPIRIN [Concomitant]
  8. PAMIDRONATE (PAMIDRNATE DISODIUM) [Concomitant]

REACTIONS (2)
  - Pruritus [None]
  - Eyelid oedema [None]
